FAERS Safety Report 5139515-X (Version None)
Quarter: 2006Q4

REPORT INFORMATION
  Report Type: 
  Country: None (occurrence: None)
  Receive Date: 20061024
  Receipt Date: 20061012
  Transmission Date: 20070319
  Serious: Yes (Life-Threatening)
  Sender: FDA-Public Use
  Company Number: 2006071154

PATIENT
  Age: 76 Year
  Sex: Male

DRUGS (8)
  1. CEFPODOXIME PROXETIL [Suspect]
     Indication: PROPHYLAXIS
     Dosage: 200 MG, ORAL
     Route: 048
     Dates: start: 20050218, end: 20050222
  2. PIPERACILLIN SODIUM [Concomitant]
  3. VALSARTAN [Concomitant]
  4. CILNIDIPINE (CILNIDIPINE) [Concomitant]
  5. PREDNISOLONE [Concomitant]
  6. BUCILLAMINE (BUCILLAMINE) [Concomitant]
  7. REBAMIPIDE (REBAMIPIDE) [Concomitant]
  8. PROPAFENONE HCL [Concomitant]

REACTIONS (8)
  - CELL MARKER [None]
  - CELL MARKER INCREASED [None]
  - DRUG INTERACTION [None]
  - HYPERSENSITIVITY [None]
  - INFLAMMATION [None]
  - LYMPHOCYTE STIMULATION TEST POSITIVE [None]
  - PNEUMONIA [None]
  - PULMONARY ALVEOLAR HAEMORRHAGE [None]
